FAERS Safety Report 7867421-6 (Version None)
Quarter: 2011Q4

REPORT INFORMATION
  Report Type: 
  Country: None (occurrence: None)
  Receive Date: 20111028
  Receipt Date: 20111018
  Transmission Date: 20120403
  Serious: Yes (Hospitalization, Other)
  Sender: FDA-Public Use
  Company Number: US-BAYER-2011-015768

PATIENT
  Age: 35 Year
  Sex: Female

DRUGS (5)
  1. MAXALT [Concomitant]
     Indication: MIGRAINE
  2. YASMIN [Suspect]
     Indication: ACNE
     Dosage: UNK
     Dates: start: 20020101, end: 20081031
  3. XANAX [Concomitant]
  4. AMBIEN [Concomitant]
  5. CYMBALTA [Concomitant]
     Indication: DEPRESSION
     Dosage: UNK
     Dates: start: 20050101, end: 20090101

REACTIONS (7)
  - CEREBROVASCULAR ACCIDENT [None]
  - INJURY [None]
  - NEUROPATHY PERIPHERAL [None]
  - MULTIFOCAL MOTOR NEUROPATHY [None]
  - MIGRAINE [None]
  - PAIN [None]
  - ANXIETY [None]
